FAERS Safety Report 24186521 (Version 2)
Quarter: 2024Q3

REPORT INFORMATION
  Report Type: Report from Study
  Country: CA (occurrence: None)
  Receive Date: 20240808
  Receipt Date: 20240824
  Transmission Date: 20241016
  Serious: Yes (Hospitalization)
  Sender: ASTRAZENECA
  Company Number: 2023A068805

PATIENT
  Age: 3197 Week
  Sex: Male

DRUGS (2)
  1. CALQUENCE [Suspect]
     Active Substance: ACALABRUTINIB
     Indication: Chronic lymphocytic leukaemia
     Route: 048
     Dates: start: 20210730
  2. VORICONAZOLE [Suspect]
     Active Substance: VORICONAZOLE

REACTIONS (3)
  - Central nervous system fungal infection [Unknown]
  - Immunodeficiency [Unknown]
  - Drug interaction [Unknown]

NARRATIVE: CASE EVENT DATE: 20230118
